FAERS Safety Report 9705721 (Version 2)
Quarter: 2015Q3

REPORT INFORMATION
  Report Type: Spontaneous
  Country: US (occurrence: US)
  Receive Date: 20131122
  Receipt Date: 20150803
  Transmission Date: 20151125
  Serious: No
  Sender: FDA-Public Use
  Company Number: US-GILEAD-2008-0017825

PATIENT
  Sex: Female

DRUGS (3)
  1. LASIX [Concomitant]
     Active Substance: FUROSEMIDE
  2. OXYGEN. [Concomitant]
     Active Substance: OXYGEN
  3. LETAIRIS [Suspect]
     Active Substance: AMBRISENTAN
     Indication: PULMONARY ARTERIAL HYPERTENSION
     Dates: start: 20080620, end: 20080716

REACTIONS (9)
  - Sinusitis [None]
  - Chest pain [None]
  - Local swelling [None]
  - Lymphadenopathy [None]
  - Fatigue [None]
  - Dyspnoea [None]
  - Eye pain [None]
  - Arrhythmia [None]
  - Blood glucose increased [None]
